FAERS Safety Report 16272071 (Version 2)
Quarter: 2019Q2

REPORT INFORMATION
  Report Type: Spontaneous
  Country: US (occurrence: US)
  Receive Date: 20190503
  Receipt Date: 20190514
  Transmission Date: 20190711
  Serious: Yes (Hospitalization, Other)
  Sender: FDA-Public Use
  Company Number: US-NEUROCRINE BIOSCIENCES INC.-2019NBI01056

PATIENT
  Age: 71 Year
  Sex: Female

DRUGS (18)
  1. OXYBUTIN ER [Concomitant]
     Active Substance: OXYBUTYNIN CHLORIDE
     Indication: URINARY INCONTINENCE
     Route: 048
     Dates: start: 20111209
  2. SERTRALINE [Concomitant]
     Active Substance: SERTRALINE HYDROCHLORIDE
     Indication: MOOD DISORDER DUE TO A GENERAL MEDICAL CONDITION
     Route: 048
     Dates: start: 20101209
  3. A-HYDROCORT [Concomitant]
     Active Substance: HYDROCORTISONE SODIUM SUCCINATE
     Indication: RASH
     Dosage: APPLY TOPICALLY TO SKIN RASH A MINIMUM OFEVERY 8 HOURS AS NEEDED. NOT TO EXCEDD 2 DOSES IN 24 HOURS
     Route: 061
     Dates: start: 20180714
  4. INGREZZA [Suspect]
     Active Substance: VALBENAZINE
     Indication: TARDIVE DYSKINESIA
     Dosage: 40 MG EVERY OTHER DAY FOR ONE WEEK
     Route: 048
     Dates: start: 2018, end: 20181207
  5. OMEPRAZOLE. [Concomitant]
     Active Substance: OMEPRAZOLE
     Indication: GASTROOESOPHAGEAL REFLUX DISEASE
     Route: 048
     Dates: start: 20180420
  6. REFRESH TEAR [Concomitant]
     Indication: DRY EYE
     Dosage: INSTILL ONE DROP IN BOTH EYES TWICE DAILY
     Dates: start: 20180801
  7. MURINE EAR [Concomitant]
     Dosage: INSTILL 6 DROPS INTO AFFECTED EAR(S) AT BEDTIME X 4 DAYS. RN TO ASSESS AND IRRIGATE EAR WITH WARM WA
     Dates: start: 20180714
  8. ATENOLOL. [Concomitant]
     Active Substance: ATENOLOL
     Indication: HYPERTENSION
     Route: 048
     Dates: start: 20181120
  9. FEROSUL [Concomitant]
     Indication: ANAEMIA
     Route: 048
  10. GAVILAX [Concomitant]
     Active Substance: POLYETHYLENE GLYCOL 3350
     Indication: CONSTIPATION
     Dosage: DISSOLVE 17 GRAMS (1 CAPFUL) IN 8 OUNCE OF WATER AND DRINK BY MOUTH AT BEDTIME
     Dates: start: 20171201
  11. AMLODIPINE [Concomitant]
     Active Substance: AMLODIPINE BESYLATE
     Indication: HYPERTENSION
     Route: 048
     Dates: start: 20181218
  12. DIVALPROEX [Concomitant]
     Active Substance: DIVALPROEX SODIUM
     Indication: BEHAVIOUR DISORDER
     Route: 048
     Dates: start: 20170302
  13. INGREZZA [Suspect]
     Active Substance: VALBENAZINE
     Route: 048
     Dates: start: 20181208
  14. LATUDA [Concomitant]
     Active Substance: LURASIDONE HYDROCHLORIDE
     Indication: DEMENTIA
     Dosage: WITH FOOD
     Route: 048
     Dates: start: 20180317
  15. NAPROXEN. [Concomitant]
     Active Substance: NAPROXEN
     Indication: PAIN
     Route: 048
     Dates: start: 20170720
  16. ACETAMINOPHEN. [Concomitant]
     Active Substance: ACETAMINOPHEN
     Indication: PAIN
     Dosage: NOT TO EXCEED 4 GRAMS OF ACETAMINOPHEN IN 24 HOURS
     Route: 048
     Dates: start: 20180613
  17. BIOTENE NOS [Concomitant]
     Active Substance: CETYLPYRIDINIUM CHLORIDE OR SODIUM FLUORIDE OR SODIUM MONOFLUOROPHOSPHATE OR GLUCOSE OXIDASE\LACTOFERRIN\LACTOPEROXIDASE BOVINE\LYSOZYME
     Indication: DRY MOUTH
     Dosage: RINSE WITH ONE TABLESPOONFUL FOR 30 SECONDS THREE TIMES DAILY
     Dates: start: 20120312
  18. MUCINEX [Concomitant]
     Active Substance: GUAIFENESIN
     Indication: COUGH

REACTIONS (13)
  - Acute respiratory failure [Unknown]
  - Sedation [Unknown]
  - Urinary tract infection [Recovered/Resolved]
  - Tongue paralysis [Unknown]
  - Dysphagia [Not Recovered/Not Resolved]
  - Urinary tract infection [Unknown]
  - Sepsis [Unknown]
  - Mental status changes [Unknown]
  - Pneumonia [Unknown]
  - Off label use [Unknown]
  - Confusional state [Unknown]
  - Gait disturbance [Unknown]
  - Facial paralysis [Unknown]

NARRATIVE: CASE EVENT DATE: 2018
